FAERS Safety Report 10030623 (Version 2)
Quarter: 2014Q1

REPORT INFORMATION
  Report Type: Spontaneous
  Country: US (occurrence: US)
  Receive Date: 20140323
  Receipt Date: 20140323
  Transmission Date: 20141002
  Serious: No
  Sender: FDA-Public Use
  Company Number: US-ALLERGAN-1319274US

PATIENT
  Age: 32 Year
  Sex: Female

DRUGS (2)
  1. LATISSE 0.03% [Suspect]
     Indication: GROWTH OF EYELASHES
     Dosage: 2 GTT, QHS
     Route: 061
     Dates: start: 20131005, end: 20131116
  2. LATISSE 0.03% [Suspect]
     Indication: HAIR GROWTH ABNORMAL

REACTIONS (4)
  - Scleral discolouration [Recovered/Resolved]
  - Inappropriate schedule of drug administration [Unknown]
  - Off label use [Unknown]
  - Headache [Recovered/Resolved]
